FAERS Safety Report 23015897 (Version 1)
Quarter: 2023Q4

REPORT INFORMATION
  Report Type: Spontaneous
  Country: BR (occurrence: None)
  Receive Date: 20231002
  Receipt Date: 20231002
  Transmission Date: 20240109
  Serious: Yes (Hospitalization)
  Sender: FDA-Public Use
  Company Number: 2023A222961

PATIENT
  Age: 2 Month
  Sex: Male
  Weight: 6.2 kg

DRUGS (3)
  1. LOSEC [Suspect]
     Active Substance: OMEPRAZOLE
     Indication: Gastrooesophageal reflux disease
     Dosage: DILUTED IN 1ML OF WATER/HALF A TABLET, FASTING
     Dates: start: 20230829, end: 20230907
  2. LOSEC [Suspect]
     Active Substance: OMEPRAZOLE
     Indication: Gastrooesophageal reflux disease
     Dosage: DILUTED IN 1ML OF WATER/USED ONLY ONCE10.0MG ONCE/SINGLE ADMINISTRATION
     Dates: start: 20230913, end: 20230913
  3. D PREV [Concomitant]
     Indication: Vitamin supplementation
     Dates: start: 202306

REACTIONS (7)
  - Diarrhoea [Recovered/Resolved]
  - Pyrexia [Recovered/Resolved]
  - Milk allergy [Unknown]
  - Anaemia [Unknown]
  - Wrong technique in product usage process [Recovered/Resolved]
  - Medication dilution [Recovered/Resolved]
  - Product prescribing issue [Recovered/Resolved]

NARRATIVE: CASE EVENT DATE: 20230828
